FAERS Safety Report 15050320 (Version 4)
Quarter: 2019Q2

REPORT INFORMATION
  Report Type: Spontaneous
  Country: US (occurrence: US)
  Receive Date: 20180622
  Receipt Date: 20190617
  Transmission Date: 20190711
  Serious: No
  Sender: FDA-Public Use
  Company Number: US-009507513-1806USA008750

PATIENT
  Sex: Female

DRUGS (2)
  1. DULERA [Suspect]
     Active Substance: FORMOTEROL FUMARATE DIHYDRATE\MOMETASONE FUROATE
     Dosage: TWICE DAILY
     Route: 055
     Dates: start: 2016
  2. DULERA [Suspect]
     Active Substance: FORMOTEROL FUMARATE DIHYDRATE\MOMETASONE FUROATE
     Dosage: UNK UNK, QD
     Route: 055

REACTIONS (6)
  - Constipation [Recovering/Resolving]
  - Poor quality device used [Unknown]
  - No adverse event [Unknown]
  - Dysphonia [Recovering/Resolving]
  - Insomnia [Recovering/Resolving]
  - Product quality issue [Unknown]
